FAERS Safety Report 11898880 (Version 3)
Quarter: 2016Q1

REPORT INFORMATION
  Report Type: Spontaneous
  Country: US (occurrence: US)
  Receive Date: 20160108
  Receipt Date: 20160304
  Transmission Date: 20160526
  Serious: Yes (Death, Other)
  Sender: FDA-Public Use
  Company Number: US-009507513-1601USA002351

PATIENT
  Age: 70 Year
  Sex: Female

DRUGS (5)
  1. KEYTRUDA [Suspect]
     Active Substance: PEMBROLIZUMAB
     Dosage: 125 MG EVERY THREE WEEKS
     Route: 042
     Dates: start: 20151123, end: 20151123
  2. XELODA [Concomitant]
     Active Substance: CAPECITABINE
     Dosage: UNK
     Dates: start: 201310, end: 201401
  3. XELODA [Concomitant]
     Active Substance: CAPECITABINE
     Dosage: UNK
     Dates: start: 2015, end: 201511
  4. KEYTRUDA [Suspect]
     Active Substance: PEMBROLIZUMAB
     Indication: INTESTINAL ADENOCARCINOMA
     Dosage: 125 MG EVERY THREE WEEKS
     Route: 042
     Dates: start: 20151102, end: 20151102
  5. XELODA [Concomitant]
     Active Substance: CAPECITABINE
     Dosage: 1000MG,BID (ALSO REPORTED AS 1000MG IN THE MORNING AND 1500MG IN THE EVENING FOR 14D, THEN 7D OFF
     Dates: start: 201511

REACTIONS (21)
  - Product use issue [Unknown]
  - Weight decreased [Unknown]
  - Fatigue [Unknown]
  - Haemoglobin decreased [Unknown]
  - Blood alkaline phosphatase increased [Unknown]
  - Dyspnoea exertional [Unknown]
  - Lymphocyte count decreased [Unknown]
  - Aspartate aminotransferase increased [Unknown]
  - Fall [Unknown]
  - Malignant neoplasm progression [Fatal]
  - Blood albumin decreased [Unknown]
  - Platelet count decreased [Unknown]
  - Confusional state [Unknown]
  - Mean cell volume decreased [Unknown]
  - Granulocyte count increased [Unknown]
  - Blood lactate dehydrogenase increased [Unknown]
  - Asthenia [Unknown]
  - Back pain [Unknown]
  - Red cell distribution width increased [Unknown]
  - Protein total decreased [Unknown]
  - Dizziness [Unknown]

NARRATIVE: CASE EVENT DATE: 2015
